FAERS Safety Report 6986106-1 (Version None)
Quarter: 2010Q3

REPORT INFORMATION
  Report Type: 
  Country: None (occurrence: None)
  Receive Date: 20100910
  Receipt Date: 20100903
  Transmission Date: 20110219
  Serious: Yes (Hospitalization)
  Sender: FDA-Public Use
  Company Number: A-CH2010-38346

PATIENT
  Age: 19 Year
  Sex: Male
  Weight: 45 kg

DRUGS (17)
  1. TRACLEER [Suspect]
     Indication: PULMONARY ARTERIAL HYPERTENSION
     Dosage: 93..75 MG, BID, ORAL 15.63 MG, BID, ORAL 31.25 MG BID ORAL, 62.5 MG BID, ORAL
     Route: 048
     Dates: start: 20060331, end: 20060430
  2. TRACLEER [Suspect]
     Indication: PULMONARY ARTERIAL HYPERTENSION
     Dosage: 93..75 MG, BID, ORAL 15.63 MG, BID, ORAL 31.25 MG BID ORAL, 62.5 MG BID, ORAL
     Route: 048
     Dates: start: 20060501, end: 20060630
  3. TRACLEER [Suspect]
     Indication: PULMONARY ARTERIAL HYPERTENSION
     Dosage: 93..75 MG, BID, ORAL 15.63 MG, BID, ORAL 31.25 MG BID ORAL, 62.5 MG BID, ORAL
     Route: 048
     Dates: start: 20060701, end: 20070327
  4. TRACLEER [Suspect]
     Indication: PULMONARY ARTERIAL HYPERTENSION
     Dosage: 93..75 MG, BID, ORAL 15.63 MG, BID, ORAL 31.25 MG BID ORAL, 62.5 MG BID, ORAL
     Route: 048
     Dates: start: 20070328, end: 20100617
  5. MINOCYCLINE HYDROCHLORIDE [Suspect]
     Dates: start: 20091109
  6. IBUPROFEN [Suspect]
     Dates: start: 20100206, end: 20100717
  7. ASCORBIC ACID [Concomitant]
  8. PYRIDOXAL PHOSPHATE [Concomitant]
  9. FLAVINE ADENINE DINUCLEOTIDE [Concomitant]
  10. TREPROSTINIL [Concomitant]
  11. SILDENAFIL CITRATE [Concomitant]
  12. FUROSEMIDE (FUROSEMIDE SODIUM) [Concomitant]
  13. ENALAPRIL MALEATE [Concomitant]
  14. WARFARIN SODIUM [Concomitant]
  15. TEPRENONE [Concomitant]
  16. OXYGEN [Concomitant]
  17. CALCIUM PANTOTHENATE [Concomitant]

REACTIONS (4)
  - ALANINE AMINOTRANSFERASE INCREASED [None]
  - ASPARTATE AMINOTRANSFERASE INCREASED [None]
  - LIVER DISORDER [None]
  - VIRAL INFECTION [None]
